FAERS Safety Report 20710500 (Version 2)
Quarter: 2022Q2

REPORT INFORMATION
  Report Type: Report from Study
  Country: ES (occurrence: ES)
  Receive Date: 20220414
  Receipt Date: 20220415
  Transmission Date: 20220720
  Serious: Yes (Hospitalization)
  Sender: FDA-Public Use
  Company Number: None

PATIENT
  Age: 65 Year
  Sex: Female

DRUGS (11)
  1. AMLODIPINE BESYLATE [Suspect]
     Active Substance: AMLODIPINE BESYLATE
     Indication: Hypertension
     Dosage: 5 MG, DAILY; 1 TABLET PER DAY
     Route: 048
     Dates: start: 201804
  2. TELMISARTAN [Suspect]
     Active Substance: TELMISARTAN
     Indication: Hypertension
     Dosage: 1 DF, DAILY; 1 TABLET EVERY 24HRS
     Route: 048
     Dates: start: 20170626, end: 20211214
  3. PANTOPRAZOLE [Concomitant]
     Active Substance: PANTOPRAZOLE
     Dosage: 40 MG, 1X/DAY; 1 TABLET PER DAY
     Route: 048
     Dates: start: 20191030
  4. AMITRIPTYLINE [Concomitant]
     Active Substance: AMITRIPTYLINE
     Dosage: 25 MG, 2X/DAY; 1 TABLET EVERY 12 HOURS
     Route: 048
     Dates: start: 201504
  5. ALPRAZOLAM [Concomitant]
     Active Substance: ALPRAZOLAM
     Indication: Anxiety
     Dosage: 1 DF, DAILY; 1 TABLET EVERY 24HRS
     Route: 048
     Dates: start: 201504
  6. INSULIN GLARGINE [Concomitant]
     Active Substance: INSULIN GLARGINE
     Indication: Diabetes mellitus
     Dosage: 10 UIU, DAILY; 10 U/ 24 HORAS
     Route: 058
     Dates: start: 20211122
  7. BISOPROLOL [Concomitant]
     Active Substance: BISOPROLOL
     Dosage: 1 DF, DAILY; 1 TABLET EVERY 24H
     Route: 048
     Dates: start: 201507
  8. SIMVASTATIN [Concomitant]
     Active Substance: SIMVASTATIN
     Dosage: 20 MG, 1X/DAY; 1 TABLET DAILY
     Route: 048
     Dates: start: 201707
  9. FLUOXETINE [Concomitant]
     Active Substance: FLUOXETINE HYDROCHLORIDE
     Dosage: 20 MG, DAILY; 1 TABLET DAILY
     Route: 048
     Dates: start: 201503
  10. DAPAGLIFLOZIN [Concomitant]
     Active Substance: DAPAGLIFLOZIN
     Indication: Diabetes mellitus
     Dosage: 1 DF, DAILY; 1 TABLET DAILY
     Route: 048
     Dates: start: 20211122
  11. LINAGLIPTIN [Concomitant]
     Active Substance: LINAGLIPTIN
     Indication: Diabetes mellitus
     Dosage: 5 MG, DAILY; 1 TABLET DAILY
     Route: 048
     Dates: start: 201804

REACTIONS (2)
  - Chronic kidney disease [Recovered/Resolved]
  - Hypotension [Recovered/Resolved]

NARRATIVE: CASE EVENT DATE: 20211208
